FAERS Safety Report 10161646 (Version 1)
Quarter: 2014Q2

REPORT INFORMATION
  Report Type: Report from Study
  Country: CZ (occurrence: CZ)
  Receive Date: 20140509
  Receipt Date: 20140509
  Transmission Date: 20141212
  Serious: Yes (Death)
  Sender: FDA-Public Use
  Company Number: CZ-ROCHE-1392346

PATIENT
  Age: 29 Year
  Sex: Female

DRUGS (2)
  1. AVASTIN [Suspect]
     Indication: OVARIAN CANCER
     Route: 042
     Dates: start: 20130102, end: 20140108
  2. TAXOL [Suspect]
     Indication: OVARIAN CANCER
     Route: 065
     Dates: start: 20121017, end: 20130710

REACTIONS (8)
  - Wound dehiscence [Fatal]
  - Intestinal fistula [Fatal]
  - Septic shock [Fatal]
  - Onycholysis [Recovered/Resolved]
  - Leukopenia [Unknown]
  - Hypokalaemia [Unknown]
  - Hypomagnesaemia [Unknown]
  - Proteinuria [Unknown]
